FAERS Safety Report 9219205 (Version 2)
Quarter: 2013Q2

REPORT INFORMATION
  Report Type: Spontaneous
  Country: US (occurrence: US)
  Receive Date: 20130409
  Receipt Date: 20130422
  Transmission Date: 20140414
  Serious: Yes (Hospitalization)
  Sender: FDA-Public Use
  Company Number: US-BAYER-2013-043838

PATIENT
  Age: 30 Year
  Sex: Female
  Weight: 88.44 kg

DRUGS (4)
  1. YAZ [Suspect]
  2. GIANVI [Suspect]
     Dosage: UNK
     Dates: start: 20110317
  3. GIANVI [Suspect]
     Dosage: UNK
     Dates: start: 20110413
  4. GIANVI [Suspect]
     Dosage: UNK
     Dates: start: 20110511

REACTIONS (1)
  - Pulmonary embolism [Recovered/Resolved]
